FAERS Safety Report 16802099 (Version 1)
Quarter: 2019Q3

REPORT INFORMATION
  Report Type: Spontaneous
  Country: DE (occurrence: DE)
  Receive Date: 20190912
  Receipt Date: 20190912
  Transmission Date: 20191005
  Serious: Yes (Other)
  Sender: FDA-Public Use
  Company Number: DE-MYLANLABS-2019M1084773

PATIENT
  Sex: Female

DRUGS (2)
  1. VALSARTAN DURA [Suspect]
     Active Substance: VALSARTAN
     Indication: PRODUCT USED FOR UNKNOWN INDICATION
     Dosage: 160 MILLIGRAM, AM (ONCE DAILY IN THE MORNING)
     Dates: start: 20140116, end: 20180507
  2. VALSARTAN DURA [Suspect]
     Active Substance: VALSARTAN
     Dosage: 160 MILLIGRAM, BID
     Dates: start: 20180507, end: 2018

REACTIONS (2)
  - Loss of personal independence in daily activities [Unknown]
  - Mental impairment [Unknown]
